FAERS Safety Report 5590360-0 (Version None)
Quarter: 2008Q1

REPORT INFORMATION
  Report Type: 
  Country: None (occurrence: None)
  Receive Date: 20080114
  Receipt Date: 20080108
  Transmission Date: 20080703
  Serious: Yes (Other)
  Sender: FDA-Public Use
  Company Number: US-ROXANE LABORATORIES, INC-2008-BP-00349RO

PATIENT
  Age: 78 Year
  Sex: Male

DRUGS (2)
  1. AZATHIOPRINE [Suspect]
     Indication: COLITIS ULCERATIVE
  2. ASACOL [Suspect]
     Indication: COLITIS ULCERATIVE

REACTIONS (1)
  - NEUROENDOCRINE CARCINOMA OF THE SKIN [None]
